FAERS Safety Report 6432111-3 (Version None)
Quarter: 2009Q4

REPORT INFORMATION
  Report Type: 
  Country: None (occurrence: None)
  Receive Date: 20091109
  Receipt Date: 20091102
  Transmission Date: 20100525
  Serious: Yes (Death, Hospitalization, Other)
  Sender: FDA-Public Use
  Company Number: PHHY2008JP15394

PATIENT
  Sex: Male

DRUGS (10)
  1. ICL670A ICL+DISTAB [Suspect]
     Indication: APLASTIC ANAEMIA
     Dosage: 1500 MG/DAY
     Route: 048
     Dates: start: 20080620, end: 20080626
  2. ICL670A ICL+DISTAB [Suspect]
     Indication: IRON OVERLOAD
     Dosage: 1500 MG/DAY
     Route: 048
     Dates: start: 20080710, end: 20080711
  3. PRIMOBOLAN [Concomitant]
     Indication: MYELODYSPLASTIC SYNDROME
     Dosage: 15 MG, UNK
     Route: 048
     Dates: end: 20080710
  4. MAGLAX [Concomitant]
     Indication: CONSTIPATION
     Dosage: 1500 MG, UNK
     Route: 048
     Dates: end: 20080710
  5. ALLELOCK [Concomitant]
     Indication: DERMATITIS ALLERGIC
     Dosage: 10 MG, UNK
     Route: 048
     Dates: end: 20080710
  6. MINOCYCLINE HYDROCHLORIDE [Concomitant]
     Indication: TYPE 2 DIABETES MELLITUS
     Dosage: 200 MG, UNK
     Route: 042
     Dates: start: 20080627, end: 20080701
  7. MODACIN [Concomitant]
     Indication: TYPE 2 DIABETES MELLITUS
     Dosage: 2 G, UNK
     Route: 042
     Dates: start: 20080627, end: 20080701
  8. AMBISOME [Concomitant]
     Indication: TYPE 2 DIABETES MELLITUS
     Dosage: 100 MG, UNK
     Route: 042
     Dates: start: 20080630, end: 20080701
  9. VFEND [Concomitant]
     Indication: TYPE 2 DIABETES MELLITUS
     Dosage: 200 MG, UNK
     Route: 042
     Dates: start: 20080702, end: 20080711
  10. MEROPEN [Concomitant]
     Indication: TYPE 2 DIABETES MELLITUS
     Dosage: 1 G, UNK
     Route: 042
     Dates: start: 20080702, end: 20080711

REACTIONS (8)
  - BLOOD CREATININE INCREASED [None]
  - BLOOD UREA INCREASED [None]
  - C-REACTIVE PROTEIN INCREASED [None]
  - HYPOGLYCAEMIA [None]
  - MALIGNANT NEOPLASM PROGRESSION [None]
  - PLEURAL EFFUSION [None]
  - PYREXIA [None]
  - SEPTIC SHOCK [None]
